FAERS Safety Report 8390907-5 (Version None)
Quarter: 2012Q2

REPORT INFORMATION
  Report Type: 
  Country: None (occurrence: None)
  Receive Date: 20120529
  Receipt Date: 20120523
  Transmission Date: 20120825
  Serious: Yes (Hospitalization)
  Sender: FDA-Public Use
  Company Number: US-PURDUE-USA-2011-0080344

PATIENT
  Sex: Male

DRUGS (1)
  1. OXYCONTIN [Suspect]
     Indication: PRODUCT USED FOR UNKNOWN INDICATION
     Dosage: 320 MG, BID
     Route: 048

REACTIONS (4)
  - PANCREATITIS [None]
  - ALCOHOL WITHDRAWAL SYNDROME [None]
  - HEPATIC CIRRHOSIS [None]
  - SUBSTANCE ABUSE [None]
